FAERS Safety Report 9621098 (Version 1)
Quarter: 2013Q4

REPORT INFORMATION
  Report Type: Spontaneous
  Country: US (occurrence: US)
  Receive Date: 20131015
  Receipt Date: 20131015
  Transmission Date: 20140711
  Serious: Yes (Other)
  Sender: FDA-Public Use
  Company Number: US-ASTRAZENECA-2013SE74267

PATIENT
  Age: 53 Year
  Sex: Female

DRUGS (1)
  1. LISINOPRIL [Suspect]
     Route: 048

REACTIONS (4)
  - Transient ischaemic attack [Unknown]
  - Cerebrovascular accident [Unknown]
  - Cough [Unknown]
  - Gastrooesophageal reflux disease [Unknown]
